FAERS Safety Report 14450978 (Version 1)
Quarter: 2018Q1

REPORT INFORMATION
  Report Type: Spontaneous
  Country: US (occurrence: US)
  Receive Date: 20180129
  Receipt Date: 20180129
  Transmission Date: 20180509
  Serious: No
  Sender: FDA-Public Use
  Company Number: US-PFIZER INC-2018030076

PATIENT
  Age: 79 Year
  Sex: Male

DRUGS (1)
  1. TIKOSYN [Suspect]
     Active Substance: DOFETILIDE
     Dosage: 1 DF, 2X/DAY [EVERY 12 HOURS ] [AT 9AM AND THEN 9PM ]

REACTIONS (2)
  - Inappropriate schedule of drug administration [Unknown]
  - Heart rate increased [Recovered/Resolved]
